FAERS Safety Report 6829931-X (Version None)
Quarter: 2010Q3

REPORT INFORMATION
  Report Type: 
  Country: None (occurrence: None)
  Receive Date: 20100711
  Receipt Date: 20100331
  Transmission Date: 20110219
  Serious: No
  Sender: FDA-Public Use
  Company Number: US-ALLERGAN-1004295US

PATIENT
  Age: 29 Year
  Sex: Female

DRUGS (2)
  1. LATISSE [Suspect]
     Indication: PRODUCT USED FOR UNKNOWN INDICATION
     Dosage: UNK
     Dates: start: 20100329
  2. OTC EYE DROP [Concomitant]
     Indication: OCULAR DISCOMFORT

REACTIONS (4)
  - DRY EYE [None]
  - EYE PRURITUS [None]
  - EYELID OEDEMA [None]
  - OCULAR HYPERAEMIA [None]
